FAERS Safety Report 4632126-1 (Version None)
Quarter: 2005Q2

REPORT INFORMATION
  Report Type: 
  Country: None (occurrence: None)
  Receive Date: 20050411
  Receipt Date: 20050331
  Transmission Date: 20051028
  Serious: Yes (Hospitalization)
  Sender: FDA-Public Use
  Company Number: FRWYE549001APR05

PATIENT
  Age: 78 Year
  Sex: Female

DRUGS (1)
  1. ENBREL [Suspect]
     Indication: RHEUMATOID ARTHRITIS
     Route: 058
     Dates: start: 20040617, end: 20050120

REACTIONS (8)
  - CHOLECYSTITIS [None]
  - DEPRESSED LEVEL OF CONSCIOUSNESS [None]
  - DIARRHOEA [None]
  - DOUGLAS' POUCH EFFUSION [None]
  - NAUSEA [None]
  - PNEUMONIA [None]
  - RESPIRATORY DISTRESS [None]
  - VOMITING [None]
